FAERS Safety Report 5903799-8 (Version None)
Quarter: 2008Q3

REPORT INFORMATION
  Report Type: 
  Country: None (occurrence: None)
  Receive Date: 20080930
  Receipt Date: 20080923
  Transmission Date: 20090109
  Serious: Yes (Hospitalization)
  Sender: FDA-Public Use
  Company Number: IT-AMGEN-US309551

PATIENT
  Sex: Female

DRUGS (5)
  1. ENBREL [Suspect]
     Indication: RHEUMATOID ARTHRITIS
     Route: 058
     Dates: start: 20080128, end: 20080905
  2. ISONIAZID [Suspect]
     Indication: PROPHYLAXIS
     Route: 048
     Dates: start: 20071130, end: 20080905
  3. METHOTREXATE [Concomitant]
     Dosage: 15 MG
     Route: 030
  4. DELTACORTENE [Concomitant]
     Dosage: 5 MG
     Route: 048
  5. ETORICOXIB [Concomitant]
     Dosage: 90 MG
     Route: 048

REACTIONS (2)
  - AMAUROSIS [None]
  - OPTIC NEURITIS [None]
